FAERS Safety Report 6068151-6 (Version None)
Quarter: 2009Q1

REPORT INFORMATION
  Report Type: 
  Country: None (occurrence: None)
  Receive Date: 20090206
  Receipt Date: 20090126
  Transmission Date: 20090719
  Serious: Yes (Hospitalization, Other)
  Sender: FDA-Public Use
  Company Number: US-PFIZER INC-2009161827

PATIENT
  Sex: Male
  Weight: 65.77 kg

DRUGS (3)
  1. DETROL LA [Suspect]
     Dates: end: 20081201
  2. ALL OTHER THERAPEUTIC PRODUCTS [Concomitant]
     Dosage: UNK
  3. VITAMINS [Concomitant]
     Dosage: UNK

REACTIONS (2)
  - POLLAKIURIA [None]
  - RENAL IMPAIRMENT [None]
